FAERS Safety Report 15991161 (Version 1)
Quarter: 2019Q1

REPORT INFORMATION
  Report Type: Spontaneous
  Country: US (occurrence: US)
  Receive Date: 20190125
  Receipt Date: 20190125
  Transmission Date: 20190418
  Serious: No
  Sender: FDA-Public Use
  Company Number: None

PATIENT
  Age: 41 Year

DRUGS (1)
  1. CAPECITABINE TAB 500MG [Suspect]
     Active Substance: CAPECITABINE
     Indication: NEOPLASM MALIGNANT
     Dosage: 2000MG/1500MG BID ORAL?
     Route: 048
     Dates: start: 201808, end: 20190125

REACTIONS (1)
  - Sinusitis [None]

NARRATIVE: CASE EVENT DATE: 20190125
